FAERS Safety Report 21670972 (Version 3)
Quarter: 2024Q3

REPORT INFORMATION
  Report Type: Spontaneous
  Country: US (occurrence: US)
  Receive Date: 20221202
  Receipt Date: 20240808
  Transmission Date: 20241017
  Serious: No
  Sender: SANOFI AVENTIS
  Company Number: US-SA-SAC20221125001310

PATIENT
  Age: 38 Year
  Sex: Female

DRUGS (5)
  1. DUPIXENT [Suspect]
     Active Substance: DUPILUMAB
     Indication: Dermatitis atopic
     Dosage: 300 MG QOW
     Route: 058
     Dates: start: 202103
  2. DUPIXENT [Suspect]
     Active Substance: DUPILUMAB
     Indication: Asthma
     Dosage: 300 MG QOW
     Route: 058
  3. MIRENA [Concomitant]
     Active Substance: LEVONORGESTREL
     Indication: Intra-uterine contraceptive device insertion
  4. ARCALYST [Concomitant]
     Active Substance: RILONACEPT
     Indication: Mast cell activation syndrome
  5. ARCALYST [Concomitant]
     Active Substance: RILONACEPT
     Indication: Pyrexia

REACTIONS (3)
  - Asthma [Unknown]
  - Dermatitis atopic [Unknown]
  - Drug hypersensitivity [Unknown]
